FAERS Safety Report 7956987-3 (Version None)
Quarter: 2011Q4

REPORT INFORMATION
  Report Type: 
  Country: None (occurrence: None)
  Receive Date: 20111205
  Receipt Date: 20111205
  Transmission Date: 20120403
  Serious: No
  Sender: FDA-Public Use
  Company Number: None

PATIENT
  Age: 53 Year
  Sex: Female
  Weight: 86.182 kg

DRUGS (1)
  1. SUPARTZ [Suspect]
     Indication: OSTEOARTHRITIS
     Route: 011
     Dates: start: 20111021, end: 20111201

REACTIONS (2)
  - NAUSEA [None]
  - HEADACHE [None]
